FAERS Safety Report 7793685-3 (Version None)
Quarter: 2011Q4

REPORT INFORMATION
  Report Type: 
  Country: None (occurrence: None)
  Receive Date: 20111003
  Receipt Date: 20110923
  Transmission Date: 20120403
  Serious: Yes (Other)
  Sender: FDA-Public Use
  Company Number: US-US-EMD SERONO, INC.-7085444

PATIENT
  Sex: Female

DRUGS (1)
  1. REBIF [Suspect]
     Indication: MULTIPLE SCLEROSIS
     Route: 058
     Dates: start: 20100108

REACTIONS (4)
  - FATIGUE [None]
  - DYSMENORRHOEA [None]
  - MENORRHAGIA [None]
  - ENDOMETRIAL HYPERPLASIA [None]
